FAERS Safety Report 4528853-7 (Version None)
Quarter: 2004Q4

REPORT INFORMATION
  Report Type: 
  Country: None (occurrence: None)
  Receive Date: 20041215
  Receipt Date: 20041215
  Transmission Date: 20050328
  Serious: Yes (Life-Threatening, Hospitalization)
  Sender: FDA-Public Use
  Company Number: None

PATIENT
  Age: 87 Year
  Sex: Female
  Weight: 49 kg

DRUGS (4)
  1. ELAVIL [Suspect]
     Indication: NEUROPATHIC PAIN
     Dosage: 50 MG PO QHS CHRONIC
     Route: 048
  2. DEMADEX [Concomitant]
  3. TYLENOL [Concomitant]
  4. FOSAMAX [Concomitant]

REACTIONS (3)
  - ARRHYTHMIA [None]
  - BLOOD POTASSIUM DECREASED [None]
  - SYNCOPE [None]
